FAERS Safety Report 4588480-2 (Version None)
Quarter: 2005Q1

REPORT INFORMATION
  Report Type: 
  Country: None (occurrence: None)
  Receive Date: 20050215
  Receipt Date: 20050215
  Transmission Date: 20050727
  Serious: No
  Sender: FDA-Public Use
  Company Number: None

PATIENT
  Age: 39 Year
  Sex: Female
  Weight: 88.4514 kg

DRUGS (1)
  1. ALLEGRA [Suspect]
     Dosage: 1 PER DAY

REACTIONS (3)
  - BACK PAIN [None]
  - CONDITION AGGRAVATED [None]
  - MENTAL DISORDER [None]
